FAERS Safety Report 6349830-X (Version None)
Quarter: 2009Q3

REPORT INFORMATION
  Report Type: 
  Country: None (occurrence: None)
  Receive Date: 20090911
  Receipt Date: 20090904
  Transmission Date: 20100115
  Serious: Yes (Hospitalization)
  Sender: FDA-Public Use
  Company Number: PHHO2009DE10424

PATIENT
  Sex: Male
  Weight: 86 kg

DRUGS (5)
  1. BLINDED LAF237 LAF237+TAB [Suspect]
     Indication: TYPE 2 DIABETES MELLITUS
     Dosage: DOUBLE BLIND
     Route: 048
     Dates: start: 20090506, end: 20090819
  2. BLINDED NO TREATMENT RECEIVED NOMED [Suspect]
     Indication: TYPE 2 DIABETES MELLITUS
     Dosage: DOUBLE BLIND
     Route: 048
     Dates: start: 20090506, end: 20090819
  3. BLINDED PLACEBO COMP-PLA+ [Suspect]
     Indication: TYPE 2 DIABETES MELLITUS
     Dosage: DOUBLE BLIND
     Route: 048
     Dates: start: 20090506, end: 20090819
  4. DIOVAN [Suspect]
     Indication: HYPERTENSION
     Dosage: 160 MG, BID
     Route: 048
     Dates: start: 20060601, end: 20090819
  5. TORASEMIDE [Suspect]
     Indication: OEDEMA
     Dosage: 100 MG, QD
     Route: 048
     Dates: start: 20090701

REACTIONS (8)
  - ASTHENIA [None]
  - BLOOD CREATININE INCREASED [None]
  - BLOOD UREA INCREASED [None]
  - CONCOMITANT DISEASE PROGRESSION [None]
  - HYPOTENSION [None]
  - NAUSEA [None]
  - RENAL FAILURE [None]
  - RENAL FAILURE CHRONIC [None]
